FAERS Safety Report 26100026 (Version 1)
Quarter: 2025Q4

REPORT INFORMATION
  Report Type: Spontaneous
  Country: EU (occurrence: EU)
  Receive Date: 20251128
  Receipt Date: 20251128
  Transmission Date: 20260117
  Serious: Yes (Hospitalization, Other)
  Sender: AUROBINDO
  Company Number: EU-AEMPS-1776171

PATIENT
  Age: 85 Year
  Sex: Female
  Weight: 51 kg

DRUGS (5)
  1. FLUCONAZOLE [Suspect]
     Active Substance: FLUCONAZOLE
     Indication: Skin candida
     Dosage: 100 MILLIGRAM, ONCE A DAY
     Dates: start: 20250822, end: 20250901
  2. AMOXICILLIN [Suspect]
     Active Substance: AMOXICILLIN
     Indication: Skin infection
     Dosage: 1 GRAM, 3 TIMES A DAY
     Dates: start: 20250812, end: 20250818
  3. PIPERACILLIN SODIUM\TAZOBACTAM SODIUM [Suspect]
     Active Substance: PIPERACILLIN SODIUM\TAZOBACTAM SODIUM
     Indication: Skin infection
     Dosage: 12 GRAM, ONCE A DAY (12 GRAMOS/
     Dates: start: 20250818, end: 20250825
  4. PIPERACILLIN SODIUM\TAZOBACTAM SODIUM [Suspect]
     Active Substance: PIPERACILLIN SODIUM\TAZOBACTAM SODIUM
     Dosage: UNK
     Dates: start: 20250826, end: 20250901
  5. DOXYCYCLINE [Suspect]
     Active Substance: DOXYCYCLINE
     Indication: Skin infection
     Dosage: 100 MILLIGRAM, TWO TIMES A DAY
     Dates: start: 20250812, end: 20250818

REACTIONS (1)
  - Clostridium difficile colitis [Recovered/Resolved]

NARRATIVE: CASE EVENT DATE: 20250913
